FAERS Safety Report 9682528 (Version 1)
Quarter: 2013Q4

REPORT INFORMATION
  Report Type: Spontaneous
  Country: US (occurrence: US)
  Receive Date: 20131112
  Receipt Date: 20131112
  Transmission Date: 20140711
  Serious: No
  Sender: FDA-Public Use
  Company Number: US-B.I. PHARMACEUTICALS,INC./RIDGEFIELD-2013-BI-35196BP

PATIENT
  Age: 37 Year
  Sex: Female
  Weight: 91 kg

DRUGS (1)
  1. PRADAXA [Suspect]
     Indication: PROTEIN S DEFICIENCY
     Dosage: 300 MG
     Route: 048
     Dates: start: 2011

REACTIONS (2)
  - Nasal congestion [Recovered/Resolved]
  - Off label use [Not Recovered/Not Resolved]
